FAERS Safety Report 5671292-6 (Version None)
Quarter: 2008Q1

REPORT INFORMATION
  Report Type: 
  Country: None (occurrence: None)
  Receive Date: 20080318
  Receipt Date: 20080312
  Transmission Date: 20080703
  Serious: Yes (Hospitalization)
  Sender: FDA-Public Use
  Company Number: US-BRISTOL-MYERS SQUIBB COMPANY-14111850

PATIENT
  Age: 54 Year
  Sex: Female
  Weight: 62 kg

DRUGS (5)
  1. ERBITUX [Suspect]
     Indication: SQUAMOUS CELL CARCINOMA
     Dates: start: 20080212, end: 20080212
  2. CISPLATIN [Suspect]
     Indication: SQUAMOUS CELL CARCINOMA
     Dates: start: 20080129, end: 20080129
  3. RADIATION THERAPY [Suspect]
     Indication: SQUAMOUS CELL CARCINOMA
     Dosage: DOSAGE FORM=FRACTIONS, 6000CGY TOTAL DOSE
     Dates: start: 20080211, end: 20080211
  4. ATENOLOL [Concomitant]
  5. ENALAPRIL MALEATE [Concomitant]

REACTIONS (5)
  - CHILLS [None]
  - DEHYDRATION [None]
  - HYPOTENSION [None]
  - PYREXIA [None]
  - VOMITING [None]
